FAERS Safety Report 9847892 (Version 1)
Quarter: 2014Q1

REPORT INFORMATION
  Report Type: Spontaneous
  Country: US (occurrence: None)
  Receive Date: 20140123
  Receipt Date: 20140123
  Transmission Date: 20141002
  Serious: Yes (Death)
  Sender: FDA-Public Use
  Company Number: B0961083A

PATIENT
  Age: 69 Year
  Sex: Male

DRUGS (9)
  1. AMLODIPINE (AMLODIPINE) (AMLODIPINE) [Suspect]
     Route: 048
  2. LITHIUM SALT [Suspect]
     Route: 048
  3. INSULIN (INSULIN) [Suspect]
     Route: 048
  4. INSULIN (INSULIN) [Suspect]
     Route: 048
  5. FOSINOPRIL+ HYDROCHLOROTHIAZIDE [Suspect]
     Route: 048
  6. FOSINOPRIL SODIUM [Suspect]
     Route: 048
  7. DULOXETINE (DULOXETINE) (DULOXETINE) [Suspect]
     Route: 048
  8. PAROXETINE HYDROCHLORIDE [Suspect]
     Route: 048
  9. ESOMEPRAZOLE [Suspect]
     Route: 048

REACTIONS (1)
  - Completed suicide [None]
